FAERS Safety Report 4920742-9 (Version None)
Quarter: 2006Q1

REPORT INFORMATION
  Report Type: 
  Country: None (occurrence: None)
  Receive Date: 20060223
  Receipt Date: 20050928
  Transmission Date: 20060701
  Serious: Yes (Life-Threatening)
  Sender: FDA-Public Use
  Company Number: FR-BOEHRINGER INGELHEIM PHARMACEUTICALS, INC.-2005-FF-00704FF

PATIENT
  Age: 50 Year
  Sex: Male

DRUGS (1)
  1. PERSANTINE [Suspect]
     Indication: SCINTIGRAPHY
     Route: 042

REACTIONS (3)
  - CARDIO-RESPIRATORY ARREST [None]
  - MALAISE [None]
  - SYNCOPE VASOVAGAL [None]
